FAERS Safety Report 17549653 (Version 1)
Quarter: 2020Q1

REPORT INFORMATION
  Report Type: Spontaneous
  Country: DE (occurrence: DE)
  Receive Date: 20200317
  Receipt Date: 20200317
  Transmission Date: 20200409
  Serious: Yes (Hospitalization, Other)
  Sender: FDA-Public Use
  Company Number: DE-TEVA-2020-DE-1200376

PATIENT
  Age: 26 Year
  Sex: Female
  Weight: 97 kg

DRUGS (2)
  1. COPAXONE [Suspect]
     Active Substance: GLATIRAMER ACETATE
     Indication: MULTIPLE SCLEROSIS
     Dosage: SINCE JUNE 20 MG EVERY EVENING, PREVIOUSLY 40 MG 3 X PER WEEK
     Route: 058
     Dates: start: 201806, end: 20180708
  2. COPAXONE [Suspect]
     Active Substance: GLATIRAMER ACETATE
     Dosage: SEIT JUNI 20 MG JEDEN ABEND, ZUVOR 40 MG 3 X JE WOCHE
     Route: 058
     Dates: start: 20180415

REACTIONS (18)
  - Vision blurred [Recovered/Resolved]
  - Chest discomfort [Recovered/Resolved]
  - Dyspnoea [Recovered/Resolved]
  - Diarrhoea [Recovered/Resolved]
  - Vomiting [Recovered/Resolved]
  - Oxygen saturation decreased [Recovered/Resolved]
  - Feeling cold [Recovered/Resolved]
  - Cardiovascular disorder [Recovered/Resolved]
  - Daydreaming [Recovered/Resolved]
  - Hyperhidrosis [Recovered/Resolved]
  - Oxygen saturation abnormal [Recovered/Resolved]
  - Respiratory disorder [Recovered/Resolved]
  - Blood pressure decreased [Recovered/Resolved]
  - Swelling face [Recovered/Resolved]
  - Syncope [Recovered/Resolved]
  - Cyanosis [Recovered/Resolved]
  - Hypersensitivity [Recovered/Resolved]
  - Nausea [Recovered/Resolved]

NARRATIVE: CASE EVENT DATE: 20180708
